FAERS Safety Report 21972148 (Version 2)
Quarter: 2023Q1

REPORT INFORMATION
  Report Type: Spontaneous
  Country: OM (occurrence: OM)
  Receive Date: 20230209
  Receipt Date: 20230213
  Transmission Date: 20230417
  Serious: Yes (Other)
  Sender: FDA-Public Use
  Company Number: None

PATIENT
  Age: 34 Year
  Sex: Male

DRUGS (2)
  1. PREDNISOLONE [Suspect]
     Active Substance: PREDNISOLONE
     Indication: Endocrine ophthalmopathy
     Dosage: 80 MILLIGRAM PER DAY;
     Route: 048
  2. PREDNISOLONE [Suspect]
     Active Substance: PREDNISOLONE
     Dosage: UNK, TAPERED DOSE/ TAPERING DOSES
     Route: 048

REACTIONS (2)
  - Central serous chorioretinopathy [Recovered/Resolved]
  - Disease recurrence [Recovered/Resolved]
